FAERS Safety Report 8856847 (Version 1)
Quarter: 2012Q4

REPORT INFORMATION
  Report Type: Spontaneous
  Country: US (occurrence: None)
  Receive Date: 20121023
  Receipt Date: 20121023
  Transmission Date: 20130627
  Serious: No
  Sender: FDA-Public Use
  Company Number: None

PATIENT
  Age: 38 Year
  Sex: Male
  Weight: 205 kg

DRUGS (2)
  1. MEFLOQUINE [Suspect]
     Indication: MALARIA PROPHYLAXIS
     Route: 048
     Dates: start: 19931007, end: 19941007
  2. MEFLOQUINE [Suspect]
     Indication: MALARIA PROPHYLAXIS
     Dosage: 250 mg  1 per wk for 7 mon
     Route: 048

REACTIONS (8)
  - Amnesia [None]
  - Condition aggravated [None]
  - Impaired work ability [None]
  - Asthenia [None]
  - Irritability [None]
  - Hypervigilance [None]
  - Middle insomnia [None]
  - Fear [None]
